FAERS Safety Report 5254840-X (Version None)
Quarter: 2007Q1

REPORT INFORMATION
  Report Type: 
  Country: None (occurrence: None)
  Receive Date: 20070302
  Receipt Date: 20070302
  Transmission Date: 20070707
  Serious: Yes (Hospitalization)
  Sender: FDA-Public Use
  Company Number: None

PATIENT
  Age: 19 Year
  Sex: Female
  Weight: 54 kg

DRUGS (15)
  1. HALDOL [Suspect]
     Indication: AGITATION
     Dosage: 5MG/ML Q8HR X5 DOSES IV
     Route: 042
     Dates: start: 20061005, end: 20061005
  2. HALDOL [Suspect]
     Indication: SEDATION
     Dosage: 5MG/ML Q8HR X5 DOSES IV
     Route: 042
     Dates: start: 20061005, end: 20061005
  3. ZANTAC [Concomitant]
  4. VANCOMYCIN HYDROCHLORIDE [Concomitant]
  5. ANCEF [Concomitant]
  6. GENTAMICIN [Concomitant]
  7. DUONEBS [Concomitant]
  8. HEPARIN [Concomitant]
  9. TYLENOL [Concomitant]
  10. HALDOL [Concomitant]
  11. ATIVAN [Concomitant]
  12. FENTANYL [Concomitant]
  13. ZANTAC [Concomitant]
  14. POTASSIUM ACETATE [Concomitant]
  15. MAGNESIUM [Concomitant]

REACTIONS (3)
  - ELECTROCARDIOGRAM QT CORRECTED INTERVAL PROLONGED [None]
  - OCULOGYRATION [None]
  - SINUS TACHYCARDIA [None]
